FAERS Safety Report 20922972 (Version 1)
Quarter: 2022Q2

REPORT INFORMATION
  Report Type: Spontaneous
  Country: US (occurrence: US)
  Receive Date: 20220607
  Receipt Date: 20220607
  Transmission Date: 20220720
  Serious: No
  Sender: FDA-Public Use
  Company Number: US-PHARMAESSENTIA CORPORATION-US-2022-PEC-000502

PATIENT

DRUGS (4)
  1. BESREMI [Suspect]
     Active Substance: ROPEGINTERFERON ALFA-2B-NJFT
     Indication: Polycythaemia vera
     Dosage: 50 MICROGRAM, Q2W
     Route: 058
     Dates: start: 20220202
  2. BESREMI [Suspect]
     Active Substance: ROPEGINTERFERON ALFA-2B-NJFT
     Dosage: 110 MCG, Q2W
     Route: 065
  3. ASPIRIN [Concomitant]
     Active Substance: ASPIRIN
     Indication: Haematocrit abnormal
     Dosage: 81 MILLIGRAM, QD
     Route: 048
  4. BENADRYL [Concomitant]
     Active Substance: DIPHENHYDRAMINE HYDROCHLORIDE
     Indication: Seasonal allergy
     Dosage: 12 HOUR/ EVERY DAY BID
     Route: 065

REACTIONS (12)
  - Lymphopenia [Not Recovered/Not Resolved]
  - Platelet count abnormal [Unknown]
  - Urticaria [Recovering/Resolving]
  - Haematocrit decreased [Recovering/Resolving]
  - Pruritus [Recovered/Resolved]
  - Rash [Recovering/Resolving]
  - Rash pruritic [Recovering/Resolving]
  - Rash erythematous [Recovering/Resolving]
  - Neutropenia [Unknown]
  - Alopecia [Unknown]
  - Wrong dose [Unknown]
  - Needle issue [Unknown]

NARRATIVE: CASE EVENT DATE: 20220214
